FAERS Safety Report 7327340-0 (Version None)
Quarter: 2011Q1

REPORT INFORMATION
  Report Type: 
  Country: None (occurrence: None)
  Receive Date: 20110302
  Receipt Date: 20110222
  Transmission Date: 20110831
  Serious: Yes (Hospitalization)
  Sender: FDA-Public Use
  Company Number: US-AMGEN-USASP2011010274

PATIENT
  Age: 16 Year
  Sex: Male

DRUGS (7)
  1. DEPLIN [Concomitant]
  2. SAPHRIS [Concomitant]
  3. ZONEGRAN [Concomitant]
  4. PRILOSEC [Concomitant]
  5. CELEBREX [Concomitant]
  6. LAMICTAL [Concomitant]
  7. ENBREL [Suspect]
     Indication: JUVENILE ARTHRITIS

REACTIONS (4)
  - AFFECTIVE DISORDER [None]
  - ASPERGER'S DISORDER [None]
  - SUICIDE ATTEMPT [None]
  - ANXIETY DISORDER [None]
